FAERS Safety Report 22023025 (Version 1)
Quarter: 2023Q1

REPORT INFORMATION
  Report Type: Spontaneous
  Country: US (occurrence: US)
  Receive Date: 20230222
  Receipt Date: 20230222
  Transmission Date: 20230418
  Serious: Yes (Death, Other)
  Sender: FDA-Public Use
  Company Number: US-MALLINCKRODT-T202301243

PATIENT
  Sex: Female
  Weight: 1 kg

DRUGS (1)
  1. INOMAX [Suspect]
     Active Substance: NITRIC OXIDE
     Indication: Pulmonary hypertension
     Dosage: UNK, INHALATION GAS
     Route: 055

REACTIONS (11)
  - Death [Fatal]
  - Bronchial fistula [Recovered/Resolved]
  - Interstitial lung disease [Unknown]
  - Atelectasis neonatal [Unknown]
  - Hypoxia [Unknown]
  - Pulmonary hypertension [Not Recovered/Not Resolved]
  - Wound [Recovering/Resolving]
  - Hypotension [Not Recovered/Not Resolved]
  - Acidosis [Unknown]
  - Right ventricular dysfunction [Unknown]
  - Product use issue [Unknown]
